FAERS Safety Report 7101613-9 (Version None)
Quarter: 2010Q4

REPORT INFORMATION
  Report Type: 
  Country: None (occurrence: None)
  Receive Date: 20101115
  Receipt Date: 20100108
  Transmission Date: 20110411
  Serious: No
  Sender: FDA-Public Use
  Company Number: US-BAYER-200927814NA

PATIENT
  Age: 42 Year
  Sex: Female

DRUGS (3)
  1. MIRENA [Suspect]
     Indication: CONTRACEPTION
     Dosage: CONTINUOUS
     Route: 015
     Dates: start: 20060701, end: 20090101
  2. MIRENA [Suspect]
     Dosage: CONTINUOUS
     Route: 015
     Dates: start: 20090801, end: 20090101
  3. ESTROGEN [Concomitant]

REACTIONS (10)
  - ABDOMINAL PAIN [None]
  - CONTUSION [None]
  - DEVICE DISLOCATION [None]
  - HOT FLUSH [None]
  - MIDDLE INSOMNIA [None]
  - MUSCULOSKELETAL DISCOMFORT [None]
  - POST PROCEDURAL HAEMORRHAGE [None]
  - PREMATURE MENOPAUSE [None]
  - UTERINE ATROPHY [None]
  - UTERINE CONTRACTIONS ABNORMAL [None]
